FAERS Safety Report 13554044 (Version 1)
Quarter: 2017Q2

REPORT INFORMATION
  Report Type: Spontaneous
  Country: US (occurrence: US)
  Receive Date: 20170517
  Receipt Date: 20170517
  Transmission Date: 20170830
  Serious: No
  Sender: FDA-Public Use
  Company Number: US-VERNALIS THERAPEUTICS, INC.-2017VRN00008

PATIENT
  Age: 59 Year
  Sex: Female
  Weight: 81.63 kg

DRUGS (3)
  1. TUZISTRA XR [Suspect]
     Active Substance: CHLORPHENIRAMINE MALEATE\CODEINE PHOSPHATE ANHYDROUS
     Indication: PNEUMONIA
     Dosage: 10 ML, ONCE
     Route: 048
     Dates: start: 20170204, end: 20170204
  2. TUZISTRA XR [Suspect]
     Active Substance: CHLORPHENIRAMINE MALEATE\CODEINE PHOSPHATE ANHYDROUS
     Indication: BRONCHITIS
  3. PROBIOTIC [Concomitant]
     Active Substance: PROBIOTICS NOS
     Dosage: UNK, 1X/DAY

REACTIONS (3)
  - Restlessness [None]
  - Insomnia [Recovered/Resolved]
  - Flushing [Recovered/Resolved]

NARRATIVE: CASE EVENT DATE: 20170204
